FAERS Safety Report 15202720 (Version 1)
Quarter: 2018Q3

REPORT INFORMATION
  Report Type: Spontaneous
  Country: US (occurrence: US)
  Receive Date: 20180627
  Receipt Date: 20180627
  Transmission Date: 20181010
  Serious: Yes (Hospitalization)
  Sender: FDA-Public Use
  Company Number: None

PATIENT
  Age: 74 Year
  Sex: Female

DRUGS (1)
  1. OPSUMIT [Suspect]
     Active Substance: MACITENTAN
     Indication: PULMONARY ARTERIAL HYPERTENSION
     Route: 048
     Dates: start: 20180225

REACTIONS (6)
  - Diabetic gastropathy [None]
  - Facial paralysis [None]
  - Weight decreased [None]
  - Syncope [None]
  - Nausea [None]
  - Friedreich^s ataxia [None]

NARRATIVE: CASE EVENT DATE: 20180609
